FAERS Safety Report 23841703 (Version 1)
Quarter: 2024Q2

REPORT INFORMATION
  Report Type: Spontaneous
  Country: US (occurrence: US)
  Receive Date: 20240510
  Receipt Date: 20240510
  Transmission Date: 20240715
  Serious: No
  Sender: FDA-Public Use
  Company Number: US-COLLEGIUM PHARMACEUTICAL, INC.-20240400283

PATIENT

DRUGS (2)
  1. XTAMPZA ER [Suspect]
     Active Substance: OXYCODONE
     Indication: Product used for unknown indication
     Dosage: 27 MILLIGRAM, BID
     Route: 065
     Dates: start: 20240311, end: 2024
  2. XTAMPZA ER [Suspect]
     Active Substance: OXYCODONE
     Dosage: 18 MILLIGRAM, TID
     Route: 065
     Dates: start: 2024

REACTIONS (5)
  - Brain fog [Recovered/Resolved]
  - Formication [Recovered/Resolved]
  - Euphoric mood [Recovered/Resolved]
  - Pruritus [Not Recovered/Not Resolved]
  - Off label use [Not Recovered/Not Resolved]

NARRATIVE: CASE EVENT DATE: 20240101
